FAERS Safety Report 22248366 (Version 1)
Quarter: 2023Q2

REPORT INFORMATION
  Report Type: Spontaneous
  Country: US (occurrence: US)
  Receive Date: 20230425
  Receipt Date: 20230425
  Transmission Date: 20230722
  Serious: Yes (Other)
  Sender: FDA-Public Use
  Company Number: US-CHIESI-2023CHF02077

PATIENT
  Sex: Male

DRUGS (8)
  1. DEFERIPRONE [Suspect]
     Active Substance: DEFERIPRONE
     Indication: Thalassaemia beta
     Dosage: 250 MILLIGRAM, TID
  2. DEFERIPRONE [Suspect]
     Active Substance: DEFERIPRONE
     Indication: Transfusion
     Dosage: 450 MILLIGRAM, TID
  3. DEFERIPRONE [Suspect]
     Active Substance: DEFERIPRONE
     Indication: Iron overload
     Dosage: 800 MILLIGRAM, TID
  4. DEFERASIROX [Suspect]
     Active Substance: DEFERASIROX
     Indication: Thalassaemia beta
     Dosage: 67 MILLIGRAM, BID
  5. DEFERASIROX [Suspect]
     Active Substance: DEFERASIROX
     Indication: Transfusion
     Dosage: 250 MILLIGRAM, BID
  6. DEFERASIROX [Suspect]
     Active Substance: DEFERASIROX
     Indication: Iron overload
     Dosage: 125 MILLIGRAM, BID
  7. DEFERASIROX [Suspect]
     Active Substance: DEFERASIROX
     Dosage: 125 MILLIGRAM, TID
  8. MINERALS\VITAMINS [Concomitant]
     Active Substance: MINERALS\VITAMINS
     Indication: Product used for unknown indication
     Dosage: UNK, QD

REACTIONS (2)
  - Nephrolithiasis [Recovered/Resolved]
  - Off label use [Not Recovered/Not Resolved]
